FAERS Safety Report 19077765 (Version 1)
Quarter: 2021Q1

REPORT INFORMATION
  Report Type: Spontaneous
  Country: AR (occurrence: AR)
  Receive Date: 20210331
  Receipt Date: 20210331
  Transmission Date: 20210420
  Serious: Yes (Other)
  Sender: FDA-Public Use
  Company Number: AR-PFIZER INC-2021304167

PATIENT
  Age: 73 Year
  Sex: Female

DRUGS (1)
  1. IBRANCE [Suspect]
     Active Substance: PALBOCICLIB
     Indication: BREAST CANCER METASTATIC
     Dosage: 125 MG, DAILY, 3X1 SCHEME
     Dates: start: 20200131

REACTIONS (10)
  - Thyroxine decreased [Unknown]
  - Blood calcium decreased [Unknown]
  - Laboratory test abnormal [Unknown]
  - Pain [Unknown]
  - Breast mass [Unknown]
  - Spinal disorder [Unknown]
  - Diarrhoea [Unknown]
  - Second primary malignancy [Unknown]
  - Neoplasm progression [Unknown]
  - Thyroid cancer [Unknown]
